FAERS Safety Report 8254792-4 (Version None)
Quarter: 2012Q2

REPORT INFORMATION
  Report Type: 
  Country: None (occurrence: None)
  Receive Date: 20120403
  Receipt Date: 20120326
  Transmission Date: 20120825
  Serious: Yes (Other)
  Sender: FDA-Public Use
  Company Number: PHHY2012JP025109

PATIENT
  Age: 38 Year
  Sex: Female

DRUGS (1)
  1. IMATINIB MESYLATE [Suspect]
     Indication: CHRONIC MYELOID LEUKAEMIA
     Route: 048

REACTIONS (5)
  - HYPOPHAGIA [None]
  - ALCOHOLIC LIVER DISEASE [None]
  - MATERNAL EXPOSURE DURING PREGNANCY [None]
  - DRUG INTOLERANCE [None]
  - NAUSEA [None]
